FAERS Safety Report 15558686 (Version 1)
Quarter: 2018Q4

REPORT INFORMATION
  Report Type: Report from Study
  Country: DE (occurrence: DE)
  Receive Date: 20181029
  Receipt Date: 20181029
  Transmission Date: 20190205
  Serious: No
  Sender: FDA-Public Use
  Company Number: DE-ROCHE-2205244

PATIENT
  Age: 59 Year
  Sex: Male
  Weight: 75 kg

DRUGS (9)
  1. OCRELIZUMAB. [Suspect]
     Active Substance: OCRELIZUMAB
     Indication: MULTIPLE SCLEROSIS
     Dosage: START DATE: 18/MAY/2018
     Route: 042
  2. RANITIDINE. [Concomitant]
     Active Substance: RANITIDINE
     Route: 048
     Dates: start: 20180518, end: 20180518
  3. PREDNISOLON [Concomitant]
     Active Substance: PREDNISOLONE
     Indication: PREMEDICATION
     Route: 048
     Dates: start: 20180615, end: 20180615
  4. PREGABALIN. [Concomitant]
     Active Substance: PREGABALIN
     Indication: PAIN
     Route: 048
     Dates: start: 20180416, end: 20180522
  5. FENISTIL (GERMANY) [Concomitant]
     Route: 048
     Dates: start: 20180614, end: 20180615
  6. PREDNISOLUT [Concomitant]
     Active Substance: PREDNISOLONE
     Indication: PREMEDICATION
     Route: 042
     Dates: start: 20180518, end: 20180518
  7. FENISTIL (GERMANY) [Concomitant]
     Indication: PREMEDICATION
     Route: 048
     Dates: start: 20180517, end: 20180518
  8. RANITIDINE. [Concomitant]
     Active Substance: RANITIDINE
     Indication: PREMEDICATION
     Route: 048
     Dates: start: 20180614, end: 20180615
  9. DEKRISTOL [Concomitant]
     Active Substance: CHOLECALCIFEROL
     Dosage: INDICATION: VITAMIN D DEFFICIENCY PROPHYLAXIS
     Route: 048
     Dates: start: 201402

REACTIONS (1)
  - Urinary tract infection [Recovered/Resolved]

NARRATIVE: CASE EVENT DATE: 201805
